FAERS Safety Report 10484924 (Version 1)
Quarter: 2014Q3

REPORT INFORMATION
  Report Type: Report from Study
  Country: PL (occurrence: PL)
  Receive Date: 20140930
  Receipt Date: 20140930
  Transmission Date: 20150326
  Serious: Yes (Hospitalization)
  Sender: FDA-Public Use
  Company Number: PL-VERTEX PHARMACEUTICALS-2014-004119

PATIENT
  Age: 51 Year
  Sex: Female
  Weight: 56 kg

DRUGS (9)
  1. RIBAVIRIN. [Suspect]
     Active Substance: RIBAVIRIN
     Indication: HEPATITIS C
     Dosage: 600 MG, UNK
     Route: 065
  2. RIBAVIRIN. [Suspect]
     Active Substance: RIBAVIRIN
     Dosage: 900 MG, UNK
     Route: 065
  3. PEGYLATED INTERFERON ALPHA NOS [Suspect]
     Active Substance: PEGINTERFERON ALFA-2A OR PEGINTERFERON ALFA-2B
     Indication: HEPATITIS C
     Dosage: 180 ?G, QW
     Route: 058
  4. RIBAVIRIN. [Suspect]
     Active Substance: RIBAVIRIN
     Dosage: 200 MG, UNK
     Route: 065
  5. PEGYLATED INTERFERON ALPHA NOS [Suspect]
     Active Substance: PEGINTERFERON ALFA-2A OR PEGINTERFERON ALFA-2B
     Dosage: 90 ?G, QW
     Route: 058
  6. PEGYLATED INTERFERON ALPHA NOS [Suspect]
     Active Substance: PEGINTERFERON ALFA-2A OR PEGINTERFERON ALFA-2B
     Dosage: 135 ?G, QW
     Route: 058
  7. RIBAVIRIN. [Suspect]
     Active Substance: RIBAVIRIN
     Dosage: 200 MG, UNK
     Route: 065
  8. TELAPREVIR [Suspect]
     Active Substance: TELAPREVIR
     Indication: HEPATITIS C
     Dosage: UNK
     Route: 048
     Dates: start: 20120419
  9. RIBAVIRIN. [Suspect]
     Active Substance: RIBAVIRIN
     Dosage: 200 MG, UNK
     Route: 065

REACTIONS (6)
  - Dyspnoea [Unknown]
  - Altered state of consciousness [Unknown]
  - Body temperature increased [Unknown]
  - Decreased appetite [Unknown]
  - Asthenia [Unknown]
  - Irritability [Unknown]

NARRATIVE: CASE EVENT DATE: 2012
